FAERS Safety Report 23461318 (Version 1)
Quarter: 2024Q1

REPORT INFORMATION
  Report Type: Other
  Country: None (occurrence: US)
  Receive Date: 20240131
  Receipt Date: 20240131
  Transmission Date: 20240410
  Serious: Yes (Other)
  Sender: FDA-Public Use
  Company Number: US-B.Braun Medical Inc.-2152382

PATIENT
  Sex: Female

DRUGS (2)
  1. ACETAMINOPHEN [Suspect]
     Active Substance: ACETAMINOPHEN
  2. WARFARIN [Suspect]
     Active Substance: WARFARIN

REACTIONS (5)
  - International normalised ratio increased [None]
  - Procedural pain [None]
  - Post procedural haemorrhage [None]
  - Drug interaction [None]
  - Drug ineffective [None]
